FAERS Safety Report 15593524 (Version 1)
Quarter: 2018Q4

REPORT INFORMATION
  Report Type: Spontaneous
  Country: US (occurrence: US)
  Receive Date: 20181106
  Receipt Date: 20181106
  Transmission Date: 20190205
  Serious: Yes (Hospitalization)
  Sender: FDA-Public Use
  Company Number: US-VERTEX PHARMACEUTICALS-2018-008004

PATIENT
  Age: 26 Year
  Sex: Male

DRUGS (7)
  1. SYMDEKO [Suspect]
     Active Substance: IVACAFTOR\TEZACAFTOR
     Indication: CYSTIC FIBROSIS
     Dosage: 100 MG TEZACAFTOR/150 MG IVACAFTOR AM; 150 MG IVACAFTOR PM, WITH FAT CONTAINING FOOD
     Route: 048
     Dates: start: 201807
  2. BETHKIS [Concomitant]
     Active Substance: TOBRAMYCIN
  3. PULMOZYME [Concomitant]
     Active Substance: DORNASE ALFA
  4. CAYSTON [Concomitant]
     Active Substance: AZTREONAM
  5. SYMDEKO [Suspect]
     Active Substance: IVACAFTOR\TEZACAFTOR
     Indication: BACTERIAL DISEASE CARRIER
  6. ZENPEP [Concomitant]
     Active Substance: PANCRELIPASE AMYLASE\PANCRELIPASE LIPASE\PANCRELIPASE PROTEASE
  7. HYPERSAL [Concomitant]

REACTIONS (1)
  - Hospitalisation [Unknown]

NARRATIVE: CASE EVENT DATE: 20181019
